FAERS Safety Report 7126110-6 (Version None)
Quarter: 2010Q4

REPORT INFORMATION
  Report Type: 
  Country: None (occurrence: None)
  Receive Date: 20101115
  Receipt Date: 20101108
  Transmission Date: 20110411
  Serious: Yes (Hospitalization)
  Sender: FDA-Public Use
  Company Number: AXC-2010-000231

PATIENT
  Age: 6 Month
  Sex: Female

DRUGS (1)
  1. SUCRALFATE [Suspect]
     Indication: HAEMORRHAGE PROPHYLAXIS
     Dosage: 200 MG/ML,NTRAGASTRIC, INTRAVENOUS
     Route: 042
     Dates: start: 19940101, end: 19940101

REACTIONS (3)
  - BLOOD ALUMINIUM INCREASED [None]
  - INCORRECT ROUTE OF DRUG ADMINISTRATION [None]
  - INFECTION [None]
